FAERS Safety Report 24583796 (Version 1)
Quarter: 2024Q4

REPORT INFORMATION
  Report Type: Report from Study
  Country: CA (occurrence: CA)
  Receive Date: 20241106
  Receipt Date: 20241106
  Transmission Date: 20250114
  Serious: Yes (Other)
  Sender: BIOGEN
  Company Number: CA-BIOGENIDEC-2015BI110646

PATIENT
  Age: 40 Year
  Sex: Female

DRUGS (2)
  1. TECFIDERA [Suspect]
     Active Substance: DIMETHYL FUMARATE
     Indication: Multiple sclerosis
     Dosage: STARTING DOSE
     Route: 050
     Dates: start: 20150720, end: 20150727
  2. TECFIDERA [Suspect]
     Active Substance: DIMETHYL FUMARATE
     Dosage: MAINTENANCE DOSE
     Route: 050
     Dates: start: 20150720, end: 20190922

REACTIONS (8)
  - Crohn^s disease [Unknown]
  - Intentional underdose [Recovered/Resolved]
  - Skin ulcer [Unknown]
  - Product dose omission in error [Recovered/Resolved]
  - Post procedural complication [Unknown]
  - Flushing [Recovered/Resolved with Sequelae]
  - Pruritus [Recovered/Resolved]
  - Abdominal pain upper [Recovered/Resolved]

NARRATIVE: CASE EVENT DATE: 20150701
